FAERS Safety Report 6286410-9 (Version None)
Quarter: 2009Q3

REPORT INFORMATION
  Report Type: 
  Country: None (occurrence: None)
  Receive Date: 20090728
  Receipt Date: 20090720
  Transmission Date: 20100115
  Serious: No
  Sender: FDA-Public Use
  Company Number: B0584001A

PATIENT
  Age: 63 Year
  Sex: Female
  Weight: 56 kg

DRUGS (1)
  1. ALLI [Suspect]
     Dosage: 60MG AT NIGHT
     Route: 048
     Dates: start: 20090601, end: 20090601

REACTIONS (1)
  - HAEMATOCHEZIA [None]
